FAERS Safety Report 11446200 (Version 10)
Quarter: 2017Q1

REPORT INFORMATION
  Report Type: Spontaneous
  Country: US (occurrence: US)
  Receive Date: 20150902
  Receipt Date: 20170322
  Transmission Date: 20170428
  Serious: Yes (Hospitalization)
  Sender: FDA-Public Use
  Company Number: US-ACTELION PHARMACEUTICALS US, INC.-A-US2015-114130

PATIENT
  Age: 69 Year
  Sex: Female
  Weight: 55.33 kg

DRUGS (4)
  1. ADEMPAS [Suspect]
     Active Substance: RIOCIGUAT
     Indication: PRODUCT USED FOR UNKNOWN INDICATION
     Dosage: UNK
     Route: 065
     Dates: start: 20150722
  2. VELETRI [Suspect]
     Active Substance: EPOPROSTENOL
     Indication: PULMONARY HYPERTENSION
     Dosage: 3 NG/KG, PER MIN
     Route: 042
     Dates: start: 20150220
  3. VELETRI [Suspect]
     Active Substance: EPOPROSTENOL
     Dosage: 25 NG/KG, PER MIN
     Route: 042
     Dates: start: 20150220
  4. COUMADIN [Concomitant]
     Active Substance: WARFARIN SODIUM

REACTIONS (16)
  - Skin warm [Unknown]
  - Hypotension [Unknown]
  - Catheter site erythema [Unknown]
  - Multiple allergies [Unknown]
  - Pruritus [Unknown]
  - Dry skin [Unknown]
  - Joint stiffness [Unknown]
  - Nasal discomfort [Unknown]
  - Skin irritation [Unknown]
  - Rash [Unknown]
  - Hyperaesthesia [Unknown]
  - Urticaria [Unknown]
  - Angioplasty [Unknown]
  - Pain in jaw [Unknown]
  - Abdominal discomfort [Unknown]
  - Catheter site swelling [Unknown]
